FAERS Safety Report 6023184-0 (Version None)
Quarter: 2008Q4

REPORT INFORMATION
  Report Type: 
  Country: None (occurrence: None)
  Receive Date: 20081223
  Receipt Date: 20081209
  Transmission Date: 20090506
  Serious: Yes (Hospitalization)
  Sender: FDA-Public Use
  Company Number: 2008S1021888

PATIENT
  Age: 23 Year
  Sex: Female

DRUGS (7)
  1. PANTOPRAZOLE SODIUM [Suspect]
     Dosage: 40 MG; DAILY; INTRAVENOUS
     Route: 042
  2. DROTAVERINE (DROTAVERINE) [Suspect]
     Dosage: 40 MG; 3 TIMES A DAY; INTRAMUSCULAR
     Route: 030
  3. DIAZEPAM [Suspect]
     Indication: GRAND MAL CONVULSION
     Dosage: ; INTRAVENOUS
     Route: 042
  4. DICLOFENAC (DICLOFENAC) [Suspect]
     Indication: ABDOMINAL PAIN
     Dosage: ; TWICE A DAY; INTRAMUSCULAR
     Route: 030
  5. METOCLOPRAMIDE [Suspect]
     Indication: VOMITING
     Dosage: ; INTRAVENOUS
     Route: 042
  6. PHENYTOIN [Suspect]
     Indication: GRAND MAL CONVULSION
     Dosage: 300 MG; DAILY; ORAL
     Route: 048
  7. ANTIBACTERIALS FOR SYSTEMIC USE [Concomitant]

REACTIONS (4)
  - BLOOD SODIUM DECREASED [None]
  - GRAND MAL CONVULSION [None]
  - HYPERTENSION [None]
  - PORPHYRIA ACUTE [None]
